FAERS Safety Report 9184651 (Version 5)
Quarter: 2014Q1

REPORT INFORMATION
  Report Type: Spontaneous
  Country: JP (occurrence: JP)
  Receive Date: 20130324
  Receipt Date: 20140115
  Transmission Date: 20141002
  Serious: Yes (Hospitalization)
  Sender: FDA-Public Use
  Company Number: JP-OTSUKA-JP-2013-10583

PATIENT
  Age: 76 Year
  Sex: Male
  Weight: 79.4 kg

DRUGS (12)
  1. SAMSCA [Suspect]
     Indication: CARDIAC FAILURE
     Route: 048
  2. SAMSCA [Suspect]
     Indication: CARDIAC FAILURE
     Dosage: 15 MG MILLIGRAM(S), QAM
     Route: 048
     Dates: start: 20130220, end: 20130224
  3. SAMSCA [Suspect]
     Dosage: 7.5-15MG, QD, INTERMITTENTLY
     Route: 048
     Dates: start: 20130307
  4. SAMSCA [Suspect]
     Dosage: 15 MG MILLIGRAM(S), PRN
     Route: 048
  5. WARFARIN [Concomitant]
     Indication: ATRIAL FIBRILLATION
     Dosage: 1 MG MILLIGRAM(S), QD
     Route: 048
  6. WARFARIN [Concomitant]
     Dosage: 0.5 MG MILLIGRAM(S), QD
     Route: 048
  7. ZYLORIC [Concomitant]
     Indication: HYPERURICAEMIA
     Dosage: 100 MG MILLIGRAM(S), BID
     Route: 048
  8. LASIX [Concomitant]
     Indication: CARDIAC FAILURE
     Dosage: 40 MG MILLIGRAM(S), QD
     Route: 048
  9. TAKEPRON [Concomitant]
     Indication: GASTRIC ULCER
     Dosage: 15 MG MILLIGRAM(S), QD
     Route: 048
  10. ACARDI [Concomitant]
     Indication: ATRIAL FIBRILLATION
     Dosage: 2.5 MG MILLIGRAM(S), QD
     Route: 048
  11. HALFDIGOXIN [Concomitant]
     Indication: ATRIAL FIBRILLATION
     Dosage: 0.062 MG MILLIGRAM(S), QD
     Route: 048
  12. ARICEPT [Concomitant]
     Indication: DEMENTIA ALZHEIMER^S TYPE
     Dosage: 10 MG MILLIGRAM(S), QD
     Route: 048

REACTIONS (5)
  - Altered state of consciousness [Recovered/Resolved]
  - Hypernatraemia [Recovered/Resolved]
  - Hyperkalaemia [Unknown]
  - Polyuria [Unknown]
  - Dehydration [Recovered/Resolved]
